FAERS Safety Report 9556810 (Version 1)
Quarter: 2013Q3

REPORT INFORMATION
  Report Type: Spontaneous
  Country: CN (occurrence: CN)
  Receive Date: 20130926
  Receipt Date: 20130926
  Transmission Date: 20140515
  Serious: No
  Sender: FDA-Public Use
  Company Number: CN-UCBSA-098015

PATIENT
  Age: 45 Year
  Sex: Male

DRUGS (3)
  1. KEPPRA [Suspect]
     Indication: CONVULSION
     Route: 048
  2. DEPAKINE CHRONO [Suspect]
     Dosage: SUSTAINED RELEASE TABLET
     Route: 048
  3. ORYZANOL [Suspect]

REACTIONS (1)
  - Platelet count decreased [Recovered/Resolved]
